FAERS Safety Report 5471629-7 (Version None)
Quarter: 2007Q3

REPORT INFORMATION
  Report Type: 
  Country: None (occurrence: None)
  Receive Date: 20070928
  Receipt Date: 20070215
  Transmission Date: 20080115
  Serious: No
  Sender: FDA-Public Use
  Company Number: US-BRISTOL-MYERS SQUIBB COMPANY-13679964

PATIENT
  Age: 51 Year
  Sex: Male
  Weight: 127 kg

DRUGS (14)
  1. DEFINITY [Suspect]
     Indication: ECHOCARDIOGRAM
     Dosage: 3.0CC DEFINITY DILUTED IN 8.0CC SALINE
     Route: 042
  2. AMARYL [Concomitant]
  3. NORVASC [Concomitant]
  4. ZOLOFT [Concomitant]
  5. PROTONIX [Concomitant]
  6. ZETIA [Concomitant]
  7. AMOXICILLIN [Concomitant]
  8. NIASPAN [Concomitant]
  9. METFORMIN [Concomitant]
  10. TRICOR [Concomitant]
  11. ZESTORETIC [Concomitant]
  12. NITROGLYCERIN [Concomitant]
  13. METOPROLOL SUCCINATE [Concomitant]
  14. ASPIRIN [Concomitant]

REACTIONS (2)
  - BACK PAIN [None]
  - HEADACHE [None]
